FAERS Safety Report 11278282 (Version 7)
Quarter: 2016Q4

REPORT INFORMATION
  Report Type: Spontaneous
  Country: JP (occurrence: JP)
  Receive Date: 20150717
  Receipt Date: 20161018
  Transmission Date: 20170206
  Serious: Yes (Hospitalization)
  Sender: FDA-Public Use
  Company Number: JP-AMGEN-JPNSP2015071527

PATIENT
  Age: 75 Year
  Sex: Male
  Weight: 50 kg

DRUGS (9)
  1. NESP [Suspect]
     Active Substance: DARBEPOETIN ALFA
     Dosage: 120 MUG, 1X/WEEK
     Route: 058
     Dates: start: 20140716, end: 20141112
  2. URSO [Concomitant]
     Active Substance: URSODIOL
     Indication: HEPATIC FUNCTION ABNORMAL
     Dosage: 150 MG, TID
     Route: 048
     Dates: start: 20150422, end: 20150617
  3. NESP [Suspect]
     Active Substance: DARBEPOETIN ALFA
     Indication: MYELODYSPLASTIC SYNDROME
     Dosage: 240 MUG, Q2WK
     Route: 058
     Dates: start: 20140602, end: 20150520
  4. NESP [Suspect]
     Active Substance: DARBEPOETIN ALFA
     Dosage: 240 MUG, 1X/2WEEKS
     Route: 058
     Dates: start: 20150318, end: 20150520
  5. NESP [Suspect]
     Active Substance: DARBEPOETIN ALFA
     Dosage: 240 MUG, 1X/WEEK
     Route: 058
     Dates: start: 20150204, end: 20150304
  6. NESP [Suspect]
     Active Substance: DARBEPOETIN ALFA
     Dosage: 120 MUG, 1X/2WEEKS
     Route: 058
     Dates: start: 20140618
  7. NESP [Suspect]
     Active Substance: DARBEPOETIN ALFA
     Dosage: 60 MUG, UNK
     Route: 058
     Dates: start: 20140604
  8. NESP [Suspect]
     Active Substance: DARBEPOETIN ALFA
     Dosage: 240 MUG, 1X/2WEEKS
     Route: 058
     Dates: start: 20141224, end: 20150128
  9. EXJADE [Suspect]
     Active Substance: DEFERASIROX
     Indication: PRODUCT USED FOR UNKNOWN INDICATION
     Dosage: 1000 MG, QD
     Route: 048
     Dates: start: 20141210, end: 20150421

REACTIONS (3)
  - Myelofibrosis [Unknown]
  - Hepatic function abnormal [Recovered/Resolved]
  - Aplasia pure red cell [Unknown]

NARRATIVE: CASE EVENT DATE: 20150415
